FAERS Safety Report 16351380 (Version 7)
Quarter: 2020Q3

REPORT INFORMATION
  Report Type: Other
  Country: DE (occurrence: DE)
  Receive Date: 20190524
  Receipt Date: 20200930
  Transmission Date: 20201102
  Serious: Yes (Hospitalization, Other)
  Sender: FDA-Public Use
  Company Number: DE-ROCHE-2232459

PATIENT
  Age: 53 Year
  Sex: Female
  Weight: 74.5 kg

DRUGS (16)
  1. OCREVUS [Suspect]
     Active Substance: OCRELIZUMAB
     Indication: PROGRESSIVE RELAPSING MULTIPLE SCLEROSIS
     Route: 042
     Dates: start: 20180531
  2. LYRICA [Concomitant]
     Active Substance: PREGABALIN
  3. CYMBALTA [Concomitant]
     Active Substance: DULOXETINE HYDROCHLORIDE
  4. FOLIC ACID. [Concomitant]
     Active Substance: FOLIC ACID
  5. SIRDALUD [Concomitant]
     Active Substance: TIZANIDINE
  6. OCREVUS [Suspect]
     Active Substance: OCRELIZUMAB
     Dosage: 6TH INFUSION
     Route: 042
     Dates: start: 20200917
  7. OCREVUS [Suspect]
     Active Substance: OCRELIZUMAB
     Dosage: 5TH INFUSION
     Route: 042
  8. LYRICA [Concomitant]
     Active Substance: PREGABALIN
  9. BACLOFEN. [Concomitant]
     Active Substance: BACLOFEN
  10. SIRDALUD [Concomitant]
     Active Substance: TIZANIDINE
     Dosage: 1?01
  11. OCREVUS [Suspect]
     Active Substance: OCRELIZUMAB
     Indication: SECONDARY PROGRESSIVE MULTIPLE SCLEROSIS
     Dosage: 3RD INFUSION
     Route: 042
     Dates: start: 20181213
  12. LYRICA [Concomitant]
     Active Substance: PREGABALIN
  13. SOLIFENACIN [Concomitant]
     Active Substance: SOLIFENACIN
  14. CYMBALTA [Concomitant]
     Active Substance: DULOXETINE HYDROCHLORIDE
  15. PREGABALIN. [Concomitant]
     Active Substance: PREGABALIN
  16. FAMPYRA [Concomitant]
     Active Substance: DALFAMPRIDINE

REACTIONS (16)
  - Tendon rupture [Not Recovered/Not Resolved]
  - Radius fracture [Not Recovered/Not Resolved]
  - Fatigue [Not Recovered/Not Resolved]
  - Peripheral coldness [Not Recovered/Not Resolved]
  - Asthenia [Not Recovered/Not Resolved]
  - Developmental hip dysplasia [Not Recovered/Not Resolved]
  - Urinary tract infection [Recovered/Resolved]
  - Sciatica [Not Recovered/Not Resolved]
  - Disorientation [Not Recovered/Not Resolved]
  - Multiple sclerosis [Recovered/Resolved]
  - Multiple sclerosis relapse [Recovering/Resolving]
  - Fall [Unknown]
  - Productive cough [Not Recovered/Not Resolved]
  - Arthralgia [Not Recovered/Not Resolved]
  - Weight increased [Recovering/Resolving]
  - Disturbance in attention [Not Recovered/Not Resolved]

NARRATIVE: CASE EVENT DATE: 20181116
